FAERS Safety Report 8327594-8 (Version None)
Quarter: 2012Q2

REPORT INFORMATION
  Report Type: 
  Country: None (occurrence: None)
  Receive Date: 20120502
  Receipt Date: 20120418
  Transmission Date: 20120825
  Serious: Yes (Hospitalization, Other)
  Sender: FDA-Public Use
  Company Number: CN-JNJFOC-20100905462

PATIENT
  Sex: Female

DRUGS (1)
  1. RISPERDAL [Suspect]
     Indication: SCHIZOPHRENIA
     Route: 048
     Dates: start: 20091103, end: 20110304

REACTIONS (5)
  - FEELING ABNORMAL [None]
  - DIABETES MELLITUS [None]
  - PALPITATIONS [None]
  - ASTHENIA [None]
  - HYPERLIPIDAEMIA [None]
